FAERS Safety Report 9382334 (Version 1)
Quarter: 2013Q3

REPORT INFORMATION
  Report Type: Spontaneous
  Country: US (occurrence: US)
  Receive Date: 20130703
  Receipt Date: 20130703
  Transmission Date: 20140515
  Serious: Yes (Disabling)
  Sender: FDA-Public Use
  Company Number: US-GLAXOSMITHKLINE-A1029096A

PATIENT
  Age: 52 Year
  Sex: Female

DRUGS (23)
  1. BENLYSTA [Suspect]
     Indication: SYSTEMIC LUPUS ERYTHEMATOSUS
     Dosage: 640MG UNKNOWN
     Route: 042
     Dates: start: 20130327
  2. ALENDRONATE [Concomitant]
  3. VISTARIL [Concomitant]
  4. METOPROLOL [Concomitant]
  5. FENTANYL PATCH [Concomitant]
  6. NEURONTIN [Concomitant]
  7. ROBAXIN [Concomitant]
  8. PLAQUENIL [Concomitant]
  9. ZOCOR [Concomitant]
  10. ADDERALL [Concomitant]
  11. WELLBUTRIN [Concomitant]
  12. TIZANIDINE HCL [Concomitant]
  13. CLONOPIN [Concomitant]
  14. CAMPRAL [Concomitant]
  15. GEODON [Concomitant]
  16. COUMADIN [Concomitant]
  17. VERAPAMIL [Concomitant]
  18. TOPAMAX [Concomitant]
  19. PERCOCET [Concomitant]
  20. FOLIC ACID [Concomitant]
  21. N-ACETYLCYSTEINE [Concomitant]
  22. TYLENOL [Concomitant]
  23. BENADRYL [Concomitant]

REACTIONS (3)
  - Stomatitis [Recovering/Resolving]
  - Decreased appetite [Unknown]
  - Pain [Unknown]
